FAERS Safety Report 24292093 (Version 1)
Quarter: 2024Q3

REPORT INFORMATION
  Report Type: Spontaneous
  Country: US (occurrence: None)
  Receive Date: 20240906
  Receipt Date: 20240906
  Transmission Date: 20241016
  Serious: No
  Sender: DOMPE FARMACEUTICI
  Company Number: US-FARMAPROD-202308-202307-2034

PATIENT
  Sex: Male

DRUGS (3)
  1. OXERVATE [Suspect]
     Active Substance: CENEGERMIN-BKBJ
     Indication: Neurotrophic keratopathy
     Route: 047
     Dates: start: 20230619, end: 20230814
  2. OXERVATE [Suspect]
     Active Substance: CENEGERMIN-BKBJ
  3. BESIVANCE [Concomitant]
     Active Substance: BESIFLOXACIN

REACTIONS (1)
  - Swelling of eyelid [Not Recovered/Not Resolved]
